FAERS Safety Report 20615674 (Version 1)
Quarter: 2022Q1

REPORT INFORMATION
  Report Type: Report from Study
  Country: AR (occurrence: AR)
  Receive Date: 20220321
  Receipt Date: 20220321
  Transmission Date: 20220423
  Serious: Yes (Other)
  Sender: FDA-Public Use
  Company Number: AR-NOVARTISPH-NVSC2020AR310101

PATIENT
  Age: 54 Year
  Sex: Female

DRUGS (2)
  1. COSENTYX [Suspect]
     Active Substance: SECUKINUMAB
     Indication: Psoriasis
     Dosage: 300 MG, QMO
     Route: 058
     Dates: start: 20200601
  2. COSENTYX [Suspect]
     Active Substance: SECUKINUMAB
     Indication: Psoriatic arthropathy

REACTIONS (9)
  - COVID-19 pneumonia [Recovered/Resolved]
  - Diabetes mellitus [Unknown]
  - Apathy [Unknown]
  - COVID-19 [Unknown]
  - Nasal crusting [Recovered/Resolved]
  - Pyrexia [Unknown]
  - Secretion discharge [Unknown]
  - Fatigue [Not Recovered/Not Resolved]
  - Condition aggravated [Recovering/Resolving]

NARRATIVE: CASE EVENT DATE: 20200901
